FAERS Safety Report 4317593-5 (Version None)
Quarter: 2004Q1

REPORT INFORMATION
  Report Type: 
  Country: None (occurrence: None)
  Receive Date: 20040312
  Receipt Date: 20040227
  Transmission Date: 20041129
  Serious: Yes (Disabling)
  Sender: FDA-Public Use
  Company Number: DE-SHR-03-014281

PATIENT

DRUGS (2)
  1. BETAFERON (INTERFERON BETA-1B) INJECTION [Suspect]
     Route: 058
     Dates: start: 20000101, end: 20031101
  2. BETAFERON (INTERFERON BETA-1B) INJECTION [Suspect]
     Route: 058
     Dates: start: 20040201

REACTIONS (9)
  - BLISTER [None]
  - BURNING SENSATION [None]
  - DIFFICULTY IN WALKING [None]
  - HYPOAESTHESIA [None]
  - INJECTION SITE INDURATION [None]
  - INJECTION SITE INFLAMMATION [None]
  - INJECTION SITE REACTION [None]
  - PAIN IN EXTREMITY [None]
  - SENSORY DISTURBANCE [None]
